FAERS Safety Report 4990736-6 (Version None)
Quarter: 2006Q2

REPORT INFORMATION
  Report Type: 
  Country: None (occurrence: None)
  Receive Date: 20060427
  Receipt Date: 20060410
  Transmission Date: 20061013
  Serious: Yes (Other)
  Sender: FDA-Public Use
  Company Number: 145331USA

PATIENT
  Age: 57 Year
  Sex: Female

DRUGS (1)
  1. PROPOFOL [Suspect]
     Dates: start: 20060329, end: 20060329

REACTIONS (4)
  - ACCIDENTAL EXPOSURE [None]
  - CELLULITIS [None]
  - CELLULITIS ORBITAL [None]
  - VISUAL DISTURBANCE [None]
